FAERS Safety Report 24244070 (Version 1)
Quarter: 2024Q3

REPORT INFORMATION
  Report Type: Spontaneous
  Country: US (occurrence: US)
  Receive Date: 20240823
  Receipt Date: 20240823
  Transmission Date: 20241016
  Serious: Yes (Life-Threatening, Hospitalization)
  Sender: PFIZER
  Company Number: US-MLMSERVICE-20240813-PI161238-00204-1

PATIENT
  Age: 27 Year
  Sex: Female

DRUGS (2)
  1. AZITHROMYCIN [Suspect]
     Active Substance: AZITHROMYCIN
     Dosage: UNK
  2. LOPERAMIDE [Suspect]
     Active Substance: LOPERAMIDE
     Dosage: UNK

REACTIONS (9)
  - Drug abuse [Unknown]
  - Overdose [Recovered/Resolved]
  - Ventricular tachycardia [Recovered/Resolved]
  - Torsade de pointes [Recovered/Resolved]
  - Pneumonia [Unknown]
  - Cardiac arrest [Recovered/Resolved]
  - Mental disorder [Recovered/Resolved]
  - Electrocardiogram QT prolonged [Recovered/Resolved]
  - Condition aggravated [Recovered/Resolved]
